FAERS Safety Report 9843467 (Version 1)
Quarter: 2013Q4

REPORT INFORMATION
  Report Type: Spontaneous
  Country: US (occurrence: None)
  Receive Date: 20131223
  Receipt Date: 20131223
  Transmission Date: 20140711
  Serious: Yes (Other)
  Sender: FDA-Public Use
  Company Number: 219376LEO

PATIENT
  Age: 63 Year
  Sex: Female

DRUGS (4)
  1. PICATO [Suspect]
     Indication: PRECANCEROUS SKIN LESION
     Dosage: 1 IN 1 D
     Route: 061
     Dates: start: 20121019
  2. LEXAPRO [Concomitant]
  3. MELATONIN [Concomitant]
  4. ZYRTEC [Concomitant]

REACTIONS (2)
  - Erythema [None]
  - Blister [None]
